FAERS Safety Report 5902078-2 (Version None)
Quarter: 2008Q3

REPORT INFORMATION
  Report Type: 
  Country: None (occurrence: None)
  Receive Date: 20080919
  Receipt Date: 20080806
  Transmission Date: 20090109
  Serious: No
  Sender: FDA-Public Use
  Company Number: US-WYE-H05423208

PATIENT
  Age: 70 Year
  Sex: Female

DRUGS (7)
  1. PRISTIQ [Suspect]
     Indication: ANXIETY
     Dosage: 50 MG WITH FOOD, ORAL
     Route: 047
     Dates: start: 20080805
  2. PRISTIQ [Suspect]
     Indication: DEPRESSION
     Dosage: 50 MG WITH FOOD, ORAL
     Route: 047
     Dates: start: 20080805
  3. FOLIC ACID [Concomitant]
  4. KLONOPIN [Concomitant]
  5. MULTIVITAMINS (ASCORBIC ACID/ERGOCALCIFEROL/FOLIC ACID/NICOTINAMIDE/PA [Concomitant]
  6. VITAMIN D (ERGOCALIFEROL) [Concomitant]
  7. ROZEREM [Concomitant]

REACTIONS (3)
  - HYPERHIDROSIS [None]
  - NAUSEA [None]
  - PRESYNCOPE [None]
